FAERS Safety Report 8062917-9 (Version None)
Quarter: 2012Q1

REPORT INFORMATION
  Report Type: 
  Country: None (occurrence: None)
  Receive Date: 20120123
  Receipt Date: 20120123
  Transmission Date: 20120608
  Serious: Yes (Hospitalization)
  Sender: FDA-Public Use
  Company Number: None

PATIENT
  Sex: Male
  Weight: 77.11 kg

DRUGS (1)
  1. METHOTREXATE [Suspect]
     Indication: PSORIASIS
     Dosage: 6 PILLS
     Route: 048
     Dates: start: 20110715, end: 20111026

REACTIONS (3)
  - PULMONARY FUNCTION TEST DECREASED [None]
  - PNEUMONITIS [None]
  - PULMONARY FIBROSIS [None]
